FAERS Safety Report 4459766-7 (Version None)
Quarter: 2004Q3

REPORT INFORMATION
  Report Type: 
  Country: None (occurrence: None)
  Receive Date: 20040928
  Receipt Date: 20040223
  Transmission Date: 20050211
  Serious: No
  Sender: FDA-Public Use
  Company Number: US-BRISTOL-MYERS SQUIBB COMPANY-12514378

PATIENT
  Age: 34 Year
  Sex: Female
  Weight: 59 kg

DRUGS (2)
  1. KENALOG-40 [Suspect]
     Indication: ARTHRALGIA
     Dosage: ROUTE: INJECTION
     Route: 051
     Dates: start: 20031117, end: 20031117
  2. SYNTHROID [Concomitant]

REACTIONS (1)
  - INJECTION SITE ATROPHY [None]
